FAERS Safety Report 19139914 (Version 4)
Quarter: 2021Q2

REPORT INFORMATION
  Report Type: Spontaneous
  Country: US (occurrence: US)
  Receive Date: 20210415
  Receipt Date: 20210423
  Transmission Date: 20210717
  Serious: No
  Sender: FDA-Public Use
  Company Number: NVSC2021US078926

PATIENT
  Age: 49 Year
  Sex: Female

DRUGS (4)
  1. COZAAR [Concomitant]
     Active Substance: LOSARTAN POTASSIUM
     Indication: HYPERTENSION
     Dosage: 25 MG, QD (THROUGH MOUTH)
     Route: 048
  2. FERROUS SULPHATE COMPOUND [Concomitant]
     Indication: IRON DEFICIENCY
     Dosage: 325 MG, QD
     Route: 048
  3. ZYRTEC [Concomitant]
     Active Substance: CETIRIZINE HYDROCHLORIDE
     Indication: HYPERSENSITIVITY
     Dosage: 500 MG, BID (THROUGH MOUTH)
     Route: 048
  4. CEFTRIAXONE. [Suspect]
     Active Substance: CEFTRIAXONE
     Indication: SEXUALLY TRANSMITTED DISEASE
     Dosage: 250 MG
     Route: 030

REACTIONS (1)
  - Expired product administered [Unknown]
